FAERS Safety Report 7358917-4 (Version None)
Quarter: 2011Q1

REPORT INFORMATION
  Report Type: 
  Country: None (occurrence: None)
  Receive Date: 20110317
  Receipt Date: 20110311
  Transmission Date: 20110831
  Serious: Yes (Other)
  Sender: FDA-Public Use
  Company Number: US-BRISTOL-MYERS SQUIBB COMPANY-15593510

PATIENT
  Age: 50 Year
  Sex: Male

DRUGS (6)
  1. CYTARABINE [Suspect]
  2. VINCRISTINE [Suspect]
     Indication: T-CELL TYPE ACUTE LEUKAEMIA
  3. RITUXIMAB [Suspect]
     Indication: T-CELL TYPE ACUTE LEUKAEMIA
  4. DEXAMETHASONE [Suspect]
     Indication: T-CELL TYPE ACUTE LEUKAEMIA
  5. DOXORUBICIN HCL [Suspect]
     Indication: T-CELL TYPE ACUTE LEUKAEMIA
  6. CYCLOPHOSPHAMIDE [Suspect]
     Indication: T-CELL TYPE ACUTE LEUKAEMIA

REACTIONS (2)
  - TOXICITY TO VARIOUS AGENTS [None]
  - CYTOMEGALOVIRUS CHORIORETINITIS [None]
